FAERS Safety Report 4913631-7 (Version None)
Quarter: 2006Q1

REPORT INFORMATION
  Report Type: 
  Country: None (occurrence: None)
  Receive Date: 20060216
  Receipt Date: 20060210
  Transmission Date: 20060701
  Serious: Yes (Life-Threatening, Hospitalization, Disabling)
  Sender: FDA-Public Use
  Company Number: US-JNJFOC-20060200109

PATIENT
  Age: 34 Year
  Sex: Male

DRUGS (5)
  1. CONCERTA [Suspect]
     Indication: SOMNOLENCE
     Route: 048
     Dates: start: 20060123
  2. ADDERALL XR 10 [Suspect]
  3. ADDERALL XR 10 [Suspect]
  4. ADDERALL XR 10 [Suspect]
  5. ADDERALL XR 10 [Suspect]
     Indication: DRUG USE FOR UNKNOWN INDICATION

REACTIONS (1)
  - CEREBROVASCULAR ACCIDENT [None]
